FAERS Safety Report 6232047-7 (Version None)
Quarter: 2009Q2

REPORT INFORMATION
  Report Type: 
  Country: None (occurrence: None)
  Receive Date: 20090616
  Receipt Date: 20090609
  Transmission Date: 20091009
  Serious: Yes (Hospitalization)
  Sender: FDA-Public Use
  Company Number: AT-ASTRAZENECA-2009PK01473

PATIENT
  Age: 16 Year
  Sex: Female

DRUGS (1)
  1. SEROQUEL [Suspect]
     Route: 048

REACTIONS (3)
  - ATAXIA [None]
  - INTENTIONAL OVERDOSE [None]
  - MUSCLE CONTRACTIONS INVOLUNTARY [None]
